FAERS Safety Report 18505082 (Version 1)
Quarter: 2020Q4

REPORT INFORMATION
  Report Type: Spontaneous
  Country: GB (occurrence: GB)
  Receive Date: 20201116
  Receipt Date: 20201116
  Transmission Date: 20210114
  Serious: Yes (Hospitalization, Other)
  Sender: FDA-Public Use
  Company Number: GB-AUROBINDO-AUR-APL-2020-055999

PATIENT
  Age: 35 Year
  Sex: Male
  Weight: 74.6 kg

DRUGS (2)
  1. ZIDOVUDINE. [Suspect]
     Active Substance: ZIDOVUDINE
     Indication: HIV INFECTION
     Dosage: UNK
     Route: 065
  2. LAMIVUDINE. [Suspect]
     Active Substance: LAMIVUDINE
     Indication: HIV INFECTION
     Dosage: UNK
     Route: 065

REACTIONS (11)
  - Stress fracture [Unknown]
  - Arthralgia [Unknown]
  - Femoral neck fracture [Unknown]
  - Bone density decreased [Unknown]
  - Joint injury [Unknown]
  - Treatment noncompliance [Unknown]
  - Gait disturbance [Unknown]
  - Limb deformity [Unknown]
  - Fracture displacement [Unknown]
  - Osteopenia [Unknown]
  - Fracture nonunion [Unknown]
